FAERS Safety Report 9258373 (Version 1)
Quarter: 2013Q2

REPORT INFORMATION
  Report Type: Report from Study
  Country: US (occurrence: US)
  Receive Date: 20130426
  Receipt Date: 20130426
  Transmission Date: 20140414
  Serious: Yes (Death, Hospitalization)
  Sender: FDA-Public Use
  Company Number: US-JNJFOC-20130411331

PATIENT
  Age: 74 Year
  Sex: Male

DRUGS (1)
  1. REMICADE [Suspect]
     Indication: CROHN^S DISEASE
     Route: 042
     Dates: start: 200710, end: 20121226

REACTIONS (3)
  - Crohn^s disease [Fatal]
  - Respiratory failure [Fatal]
  - Adverse event [Unknown]
